FAERS Safety Report 6542345-5 (Version None)
Quarter: 2010Q1

REPORT INFORMATION
  Report Type: 
  Country: None (occurrence: None)
  Receive Date: 20100119
  Receipt Date: 20100114
  Transmission Date: 20100710
  Serious: Yes (Death)
  Sender: FDA-Public Use
  Company Number: US-GILEAD-2010-0026354

PATIENT
  Sex: Female
  Weight: 64.014 kg

DRUGS (9)
  1. LETAIRIS [Suspect]
     Indication: PULMONARY ARTERIAL HYPERTENSION
     Route: 048
     Dates: start: 20081029
  2. PROTONIX [Concomitant]
  3. ZOCOR [Concomitant]
  4. BUMEX [Concomitant]
  5. XOPENEX [Concomitant]
  6. LEVOTHYROXINE SODIUM [Concomitant]
  7. DILANTIN [Concomitant]
  8. K-DUR [Concomitant]
  9. CENTRUM SILVER [Concomitant]

REACTIONS (1)
  - CARDIAC ARREST [None]
